FAERS Safety Report 7248098-X (Version None)
Quarter: 2011Q1

REPORT INFORMATION
  Report Type: 
  Country: None (occurrence: None)
  Receive Date: 20110127
  Receipt Date: 20110126
  Transmission Date: 20110831
  Serious: Yes (Hospitalization, Other)
  Sender: FDA-Public Use
  Company Number: US-ABBOTT-10P-163-0675973-00

PATIENT
  Sex: Female
  Weight: 86.26 kg

DRUGS (21)
  1. SPIRONOLACTONE [Concomitant]
     Indication: PRODUCT USED FOR UNKNOWN INDICATION
  2. NIASPAN [Suspect]
     Indication: BLOOD CHOLESTEROL
     Dates: start: 20051201
  3. NIASPAN [Suspect]
     Indication: HYPERLIPIDAEMIA
  4. COLACE [Concomitant]
     Indication: CONSTIPATION PROPHYLAXIS
  5. XOPENEX NEBULIZER [Concomitant]
     Indication: CHRONIC OBSTRUCTIVE PULMONARY DISEASE
  6. METFORMIN [Concomitant]
     Indication: DIABETES MELLITUS
  7. PLAVIX [Concomitant]
     Indication: CORONARY ARTERIAL STENT INSERTION
  8. ADVAIR [Concomitant]
     Indication: CHRONIC OBSTRUCTIVE PULMONARY DISEASE
  9. VIT B12 [Concomitant]
     Indication: PRODUCT USED FOR UNKNOWN INDICATION
  10. NITROSTAT [Concomitant]
     Indication: CHEST PAIN
  11. LISINOPRIL [Concomitant]
     Indication: BLOOD PRESSURE
  12. LEVOTHROID [Concomitant]
     Indication: HYPOTHYROIDISM
  13. CITALOPRAM [Concomitant]
     Indication: DEPRESSION
  14. NOVOLOG [Concomitant]
     Indication: DIABETES MELLITUS
     Dosage: 70/30
  15. RANITIDINE [Concomitant]
     Indication: DYSPEPSIA
  16. LOVAZA [Concomitant]
     Indication: PRODUCT USED FOR UNKNOWN INDICATION
  17. SIMVASTATIN [Concomitant]
     Indication: BLOOD CHOLESTEROL
  18. CARVEDILOL [Concomitant]
     Indication: CARDIAC FAILURE CONGESTIVE
  19. LYRICA [Concomitant]
     Indication: NEURALGIA
  20. M.V.I. [Concomitant]
     Indication: PRODUCT USED FOR UNKNOWN INDICATION
  21. LASIX [Concomitant]
     Indication: CARDIAC FAILURE CONGESTIVE

REACTIONS (4)
  - PLEURAL EFFUSION [None]
  - MYOCARDIAL INFARCTION [None]
  - CHOLELITHIASIS [None]
  - DYSPNOEA [None]
